FAERS Safety Report 15946302 (Version 1)
Quarter: 2019Q1

REPORT INFORMATION
  Report Type: Report from Study
  Country: DE (occurrence: DE)
  Receive Date: 20190211
  Receipt Date: 20190211
  Transmission Date: 20190417
  Serious: Yes (Hospitalization)
  Sender: FDA-Public Use
  Company Number: DE-PFIZER INC-2019055106

PATIENT
  Age: 81 Year
  Sex: Female

DRUGS (17)
  1. LANTAREL [Concomitant]
     Active Substance: METHOTREXATE SODIUM
  2. XARELTO [Concomitant]
     Active Substance: RIVAROXABAN
  3. NO SUBJECT DRUG [Suspect]
     Active Substance: UNSPECIFIED INGREDIENT
     Dosage: NO DOSE GIVEN
  4. ORENCIA [Suspect]
     Active Substance: ABATACEPT
     Dosage: 125 MG, EVERY 2 WEEKS
     Route: 058
     Dates: start: 20180225
  5. FOLIC ACID. [Concomitant]
     Active Substance: FOLIC ACID
  6. ORENCIA [Suspect]
     Active Substance: ABATACEPT
     Dosage: 125 MG, EVERY 2 WEEKS
     Route: 058
     Dates: end: 20171025
  7. ALLOPURINOL. [Concomitant]
     Active Substance: ALLOPURINOL
  8. FORSTEO [Concomitant]
     Active Substance: TERIPARATIDE
  9. TILIDIN [Concomitant]
     Active Substance: NALOXONE HYDROCHLORIDE\TILIDINE HYDROCHLORIDE
  10. PANTOPRAZOLE [Concomitant]
     Active Substance: PANTOPRAZOLE
  11. PREDNISOLON [PREDNISOLONE] [Concomitant]
     Active Substance: PREDNISOLONE
  12. LEVOFLOXACIN. [Concomitant]
     Active Substance: LEVOFLOXACIN
  13. LANTAREL [Suspect]
     Active Substance: METHOTREXATE SODIUM
     Dosage: 15 MG, WEEKLY
     Dates: end: 201711
  14. EXFORGE [Concomitant]
     Active Substance: AMLODIPINE BESYLATE\VALSARTAN
  15. LANTAREL [Suspect]
     Active Substance: METHOTREXATE SODIUM
     Dosage: 15 MG, WEEKLY
     Dates: start: 201802
  16. METOPROLOL. [Concomitant]
     Active Substance: METOPROLOL
  17. DEKRISTOL [Concomitant]
     Active Substance: CHOLECALCIFEROL

REACTIONS (2)
  - Cholangitis [Unknown]
  - Bile duct stone [Unknown]

NARRATIVE: CASE EVENT DATE: 20171026
